FAERS Safety Report 10003496 (Version 1)
Quarter: 2014Q1

REPORT INFORMATION
  Report Type: Spontaneous
  Country: US (occurrence: US)
  Receive Date: 20140312
  Receipt Date: 20140312
  Transmission Date: 20141002
  Serious: No
  Sender: FDA-Public Use
  Company Number: US-PFIZER INC-2014068542

PATIENT
  Age: 80 Year
  Sex: Female
  Weight: 58.5 kg

DRUGS (3)
  1. NORVASC [Suspect]
     Indication: HYPERTENSION
     Dosage: 2.5 MG, 1X/DAY
     Route: 048
     Dates: start: 20140228
  2. AMLODIPINE [Concomitant]
     Indication: HYPERTENSION
     Dosage: UNK
  3. LORAZEPAM [Concomitant]
     Dosage: 0.5 MG, UNK

REACTIONS (2)
  - Sleep disorder [Unknown]
  - Somnolence [Unknown]
